FAERS Safety Report 7535161-9 (Version None)
Quarter: 2011Q2

REPORT INFORMATION
  Report Type: 
  Country: None (occurrence: None)
  Receive Date: 20110609
  Receipt Date: 20090305
  Transmission Date: 20111010
  Serious: Yes (Death, Other)
  Sender: FDA-Public Use
  Company Number: PHHY2009JP03089

PATIENT
  Sex: Male
  Weight: 52 kg

DRUGS (13)
  1. JUZENTAIHOTO [Concomitant]
     Indication: MYELODYSPLASTIC SYNDROME
     Dosage: 3 DF
     Route: 048
     Dates: start: 20080901, end: 20081231
  2. ENTERONON [Concomitant]
     Indication: PROPHYLAXIS
     Dosage: 3 G
     Route: 048
     Dates: start: 20080901, end: 20081231
  3. RED BLOOD CELLS, LEUCOCYTE DEPLETED [Concomitant]
     Dosage: 2 UNITS EVERY 2 WEEKS
     Dates: start: 20080326, end: 20080423
  4. PLATELETS [Concomitant]
     Dosage: 10 UNITS EVERY WEEK
     Dates: start: 20080917, end: 20081008
  5. RED BLOOD CELLS, LEUCOCYTE DEPLETED [Concomitant]
     Dosage: 2 UNITS EVERY WEEK
     Dates: start: 20080507, end: 20080804
  6. ITRACONAZOLE [Concomitant]
     Indication: PROPHYLAXIS
     Dosage: 200 MG
     Route: 048
     Dates: start: 20080923, end: 20081231
  7. LAC B [Concomitant]
     Indication: PROPHYLAXIS
     Dosage: 3 G
     Route: 048
     Dates: start: 20080901, end: 20081231
  8. RED BLOOD CELLS, LEUCOCYTE DEPLETED [Concomitant]
     Dosage: 2 UNITS EVERY WEEK
     Dates: start: 20080910, end: 20090125
  9. PLATELETS [Concomitant]
     Dosage: 10 UNITS TWICE A WEEK
     Dates: start: 20081224, end: 20090125
  10. PLATELETS [Concomitant]
     Indication: MYELODYSPLASTIC SYNDROME
     Dosage: 10 UNITS 2-3 TIMES A WEEK
     Dates: start: 20080804, end: 20080910
  11. RED BLOOD CELLS, LEUCOCYTE DEPLETED [Concomitant]
     Dosage: 2 UNITS 2 TO 3 TIMES A WEEK
     Dates: start: 20080804, end: 20080905
  12. CLARITHROMYCIN [Concomitant]
     Indication: PROPHYLAXIS
     Dosage: 400 MG
     Route: 048
     Dates: start: 20080901, end: 20081231
  13. EXJADE [Suspect]
     Indication: MYELODYSPLASTIC SYNDROME
     Dosage: 1000 MG, QD
     Route: 048
     Dates: start: 20080901, end: 20081223

REACTIONS (5)
  - BLOOD UREA INCREASED [None]
  - WHITE BLOOD CELL COUNT INCREASED [None]
  - EOSINOPHIL COUNT INCREASED [None]
  - DISEASE PROGRESSION [None]
  - MYELODYSPLASTIC SYNDROME [None]
